FAERS Safety Report 23088882 (Version 1)
Quarter: 2023Q4

REPORT INFORMATION
  Report Type: Spontaneous
  Country: US (occurrence: None)
  Receive Date: 20231019
  Receipt Date: 20231019
  Transmission Date: 20240109
  Serious: No
  Sender: FDA-Public Use
  Company Number: None

PATIENT
  Age: 27 Year
  Sex: 0

DRUGS (1)
  1. EPIDIOLEX [Suspect]
     Active Substance: CANNABIDIOL
     Indication: Seizure
     Dosage: FREQUENCY : TWICE A DAY;?OTHER ROUTE : FEEDING TUBE OR ORAL;?
     Route: 050

REACTIONS (2)
  - Agitation [None]
  - Therapy change [None]

NARRATIVE: CASE EVENT DATE: 20231019
